FAERS Safety Report 17873937 (Version 1)
Quarter: 2020Q2

REPORT INFORMATION
  Report Type: Spontaneous
  Country: US (occurrence: US)
  Receive Date: 20200609
  Receipt Date: 20200609
  Transmission Date: 20200714
  Serious: No
  Sender: FDA-Public Use
  Company Number: US-JNJFOC-20200537682

PATIENT
  Sex: Male

DRUGS (10)
  1. DEGARELIX [Concomitant]
     Active Substance: DEGARELIX
     Indication: BONE DISORDER
     Route: 065
  2. PREDNISONE. [Concomitant]
     Active Substance: PREDNISONE
     Indication: PRODUCT USED FOR UNKNOWN INDICATION
     Route: 065
     Dates: start: 20200129
  3. LEVOTHYROXINE. [Concomitant]
     Active Substance: LEVOTHYROXINE
     Indication: AUTOIMMUNE THYROIDITIS
     Dosage: STARTED ABOUT 2015 OR BIT LATER
     Route: 065
  4. BENAZEPRIL [Concomitant]
     Active Substance: BENAZEPRIL HYDROCHLORIDE
     Indication: HYPERTENSION
     Dosage: STARTED BEFORE 2000
     Route: 065
  5. CALCIUM [Concomitant]
     Active Substance: CALCIUM
     Indication: BONE DISORDER
     Route: 065
  6. PROLIA [Concomitant]
     Active Substance: DENOSUMAB
     Indication: BONE DISORDER
     Route: 065
     Dates: start: 201801
  7. DEGARELIX [Concomitant]
     Active Substance: DEGARELIX
     Route: 065
  8. IMODIUM [Suspect]
     Active Substance: LOPERAMIDE HYDROCHLORIDE
     Indication: DIARRHOEA
     Route: 065
  9. VITAMIN D3 [Concomitant]
     Active Substance: CHOLECALCIFEROL
     Indication: BONE DISORDER
     Route: 065
  10. ZYTIGA [Concomitant]
     Active Substance: ABIRATERONE ACETATE
     Route: 048
     Dates: start: 20191030

REACTIONS (1)
  - Asthenia [Unknown]
